FAERS Safety Report 25098156 (Version 1)
Quarter: 2025Q1

REPORT INFORMATION
  Report Type: Report from Study
  Country: CA (occurrence: CA)
  Receive Date: 20250320
  Receipt Date: 20250320
  Transmission Date: 20250409
  Serious: Yes (Other)
  Sender: ABBVIE
  Company Number: CA-ABBVIE-6180866

PATIENT
  Age: 57 Year
  Sex: Male
  Weight: 88 kg

DRUGS (2)
  1. SKYRIZI [Suspect]
     Active Substance: RISANKIZUMAB-RZAA
     Indication: Crohn^s disease
     Route: 042
  2. CHOLESTYRAMINE [Suspect]
     Active Substance: CHOLESTYRAMINE
     Indication: Gastrointestinal disorder
     Route: 065

REACTIONS (6)
  - Intestinal resection [Unknown]
  - Impaired work ability [Unknown]
  - Eye irritation [Unknown]
  - Arthralgia [Unknown]
  - Social problem [Unknown]
  - Harvey-Bradshaw index abnormal [Unknown]

NARRATIVE: CASE EVENT DATE: 20190101
